FAERS Safety Report 22532279 (Version 2)
Quarter: 2023Q2

REPORT INFORMATION
  Report Type: Report from Study
  Country: US (occurrence: US)
  Receive Date: 20230607
  Receipt Date: 20230629
  Transmission Date: 20230722
  Serious: Yes (Hospitalization)
  Sender: FDA-Public Use
  Company Number: US-SA-2023SA171108

PATIENT
  Age: 81 Year
  Sex: Male

DRUGS (7)
  1. CABAZITAXEL [Suspect]
     Active Substance: CABAZITAXEL
     Dosage: 5 MG
     Route: 042
     Dates: start: 20210713
  2. CISPLATIN [Suspect]
     Active Substance: CISPLATIN
     Dosage: 100 MG
     Route: 042
     Dates: start: 20210716, end: 20210812
  3. GEMCITABINE HYDROCHLORIDE [Suspect]
     Active Substance: GEMCITABINE HYDROCHLORIDE
     Dosage: 2000 MG
     Route: 042
     Dates: start: 20210713
  4. CARVEDILOL [Concomitant]
     Active Substance: CARVEDILOL
     Dosage: 12.5 MG, BID
     Route: 048
     Dates: start: 20230531
  5. DILTIAZEM [Concomitant]
     Active Substance: DILTIAZEM
     Dosage: 180 MG, QD
     Route: 048
     Dates: start: 20230531
  6. ASPIRIN [Concomitant]
     Active Substance: ASPIRIN
     Dosage: 81 MG, QD
     Route: 048
     Dates: start: 20230531
  7. PLAVIX [Concomitant]
     Active Substance: CLOPIDOGREL BISULFATE
     Dosage: 75 MG, QD
     Route: 048
     Dates: start: 20230531

REACTIONS (1)
  - Aortic valve disease [Recovered/Resolved]

NARRATIVE: CASE EVENT DATE: 20230530
